FAERS Safety Report 6940115-7 (Version None)
Quarter: 2010Q3

REPORT INFORMATION
  Report Type: 
  Country: None (occurrence: None)
  Receive Date: 20100825
  Receipt Date: 20100816
  Transmission Date: 20110219
  Serious: Yes (Hospitalization)
  Sender: FDA-Public Use
  Company Number: ES-B.I. PHARMACEUTICALS,INC./RIDGEFIELD-2010-ES-00183ES

PATIENT
  Age: 80 Year
  Sex: Female

DRUGS (10)
  1. NOLOTIL [Suspect]
     Indication: BACK PAIN
     Dosage: 1725 MG
     Route: 048
     Dates: start: 20100525, end: 20100709
  2. SPIRIVA [Suspect]
     Indication: BRONCHOSPASM
     Dosage: 18 MCG
     Route: 055
     Dates: start: 20100525, end: 20100709
  3. ENALAPRIL [Suspect]
     Indication: HYPERTENSION
     Dosage: 10 MG
     Route: 048
     Dates: start: 20100525, end: 20100709
  4. OMEPRAZOLE [Suspect]
     Dosage: 20 MG
     Route: 048
     Dates: start: 20100525, end: 20100709
  5. ASPIRIN [Suspect]
     Dosage: 100 MG
     Route: 048
     Dates: start: 20100525, end: 20100709
  6. CALCIUM SANDOZ [Suspect]
     Dosage: 1 ANZ
     Route: 048
     Dates: start: 20100525, end: 20100709
  7. CODEISAN [Suspect]
     Indication: COUGH
     Dosage: PRN
     Route: 048
     Dates: start: 20100525, end: 20100709
  8. LEXATIN [Suspect]
     Dosage: 1.5 MG
     Route: 048
     Dates: start: 20100525, end: 20100709
  9. MOTILIUM [Suspect]
     Indication: VOMITING
     Dosage: STRENGTH 1MG/ML; DAILY DOSE: PRN
     Route: 048
     Dates: start: 20100525, end: 20100709
  10. URBASON [Suspect]
     Indication: BRONCHOSPASM
     Dosage: 8 MG
     Route: 048
     Dates: start: 20100525, end: 20100604

REACTIONS (1)
  - STEVENS-JOHNSON SYNDROME [None]
